FAERS Safety Report 15939599 (Version 1)
Quarter: 2019Q1

REPORT INFORMATION
  Report Type: Spontaneous
  Country: US (occurrence: US)
  Receive Date: 20190208
  Receipt Date: 20190208
  Transmission Date: 20190417
  Serious: Yes (Hospitalization)
  Sender: FDA-Public Use
  Company Number: US-OTSUKA-2018_025043

PATIENT
  Sex: Male

DRUGS (1)
  1. ABILIFY [Suspect]
     Active Substance: ARIPIPRAZOLE
     Indication: BIPOLAR DISORDER
     Dosage: 5 MG, UNK
     Route: 065
     Dates: start: 2008, end: 2011

REACTIONS (6)
  - Obsessive-compulsive disorder [Unknown]
  - Compulsive shopping [Recovered/Resolved]
  - Mental disorder [Unknown]
  - Hallucination [Recovered/Resolved]
  - Gambling disorder [Recovered/Resolved]
  - Economic problem [Unknown]

NARRATIVE: CASE EVENT DATE: 2008
